FAERS Safety Report 25684409 (Version 1)
Quarter: 2025Q3

REPORT INFORMATION
  Report Type: Spontaneous
  Country: TR (occurrence: TR)
  Receive Date: 20250815
  Receipt Date: 20250815
  Transmission Date: 20251020
  Serious: Yes (Other)
  Sender: STRIDES
  Company Number: TR-STRIDES ARCOLAB LIMITED-2025SP010079

PATIENT
  Age: 44 Year
  Sex: Female

DRUGS (9)
  1. LETROZOLE [Suspect]
     Active Substance: LETROZOLE
     Indication: Hormone receptor positive HER2 negative breast cancer
     Route: 065
  2. LETROZOLE [Suspect]
     Active Substance: LETROZOLE
     Indication: Breast cancer metastatic
  3. LETROZOLE [Suspect]
     Active Substance: LETROZOLE
     Indication: Metastatic neoplasm
  4. RIBOCICLIB [Suspect]
     Active Substance: RIBOCICLIB
     Indication: Hormone receptor positive HER2 negative breast cancer
     Route: 065
  5. RIBOCICLIB [Suspect]
     Active Substance: RIBOCICLIB
     Indication: Breast cancer metastatic
  6. RIBOCICLIB [Suspect]
     Active Substance: RIBOCICLIB
     Indication: Metastatic neoplasm
  7. GOSERELIN [Suspect]
     Active Substance: GOSERELIN
     Indication: Hormone receptor positive HER2 negative breast cancer
     Route: 065
  8. GOSERELIN [Suspect]
     Active Substance: GOSERELIN
     Indication: Breast cancer metastatic
  9. GOSERELIN [Suspect]
     Active Substance: GOSERELIN
     Indication: Metastatic neoplasm

REACTIONS (3)
  - Drug-induced liver injury [Unknown]
  - Therapy partial responder [Unknown]
  - Off label use [Unknown]
